FAERS Safety Report 8536539-7 (Version None)
Quarter: 2012Q3

REPORT INFORMATION
  Report Type: 
  Country: None (occurrence: None)
  Receive Date: 20120718
  Receipt Date: 20120718
  Transmission Date: 20120928
  Serious: No
  Sender: FDA-Public Use
  Company Number: None

PATIENT
  Age: 75 Year
  Sex: Female

DRUGS (2)
  1. VELCADE [Suspect]
  2. REVLIMID [Suspect]
     Indication: MULTIPLE MYELOMA

REACTIONS (4)
  - MUSCLE SPASMS [None]
  - ORAL PAIN [None]
  - GAIT DISTURBANCE [None]
  - DYSGEUSIA [None]
